FAERS Safety Report 10279938 (Version 1)
Quarter: 2014Q3

REPORT INFORMATION
  Report Type: Spontaneous
  Country: BR (occurrence: BR)
  Receive Date: 20140707
  Receipt Date: 20140707
  Transmission Date: 20150326
  Serious: Yes (Hospitalization)
  Sender: FDA-Public Use
  Company Number: BR-PFIZER INC-2014182661

PATIENT
  Age: 57 Year
  Sex: Male
  Weight: 69.8 kg

DRUGS (3)
  1. JANUVIA [Concomitant]
     Active Substance: SITAGLIPTIN PHOSPHATE
     Indication: DIABETES MELLITUS
     Dosage: 1 TABLET OF STRENGTH 100 MG, DAILY
     Dates: start: 2013
  2. LYRICA [Suspect]
     Active Substance: PREGABALIN
     Indication: SPINAL PAIN
     Dosage: 75 MG, 2X/DAY
     Route: 048
     Dates: start: 2012
  3. AZUKON [Concomitant]
     Active Substance: GLICLAZIDE
     Indication: DIABETES MELLITUS
     Dosage: 2 TABLETS OF STRENGTH 30 MG (60 MG), DAILY
     Dates: start: 2010

REACTIONS (2)
  - Spinal disorder [Unknown]
  - Pain [Unknown]

NARRATIVE: CASE EVENT DATE: 20131018
